FAERS Safety Report 7280060-3 (Version None)
Quarter: 2011Q1

REPORT INFORMATION
  Report Type: 
  Country: None (occurrence: None)
  Receive Date: 20110203
  Receipt Date: 20110203
  Transmission Date: 20110831
  Serious: Yes (Other)
  Sender: FDA-Public Use
  Company Number: None

PATIENT
  Age: 43 Year
  Sex: Male
  Weight: 95.2554 kg

DRUGS (1)
  1. MEFLOQUINE HYDROCHLORIDE [Suspect]
     Indication: MALARIA PROPHYLAXIS
     Dosage: 250 MG 1 PER WEEK PO
     Route: 048
     Dates: start: 20101218, end: 20110119

REACTIONS (3)
  - INFLUENZA LIKE ILLNESS [None]
  - PRODUCT LABEL ISSUE [None]
  - AGGRESSION [None]
